FAERS Safety Report 9444237 (Version 1)
Quarter: 2013Q3

REPORT INFORMATION
  Report Type: Spontaneous
  Country: PL (occurrence: PL)
  Receive Date: 20130807
  Receipt Date: 20130807
  Transmission Date: 20140515
  Serious: Yes (Other)
  Sender: FDA-Public Use
  Company Number: PHHY2013PL083756

PATIENT
  Age: 49 Year
  Sex: Male
  Weight: 70 kg

DRUGS (16)
  1. NEORAL [Suspect]
     Dates: end: 20120915
  2. SIMULECT [Suspect]
     Dosage: 20 MG, BID
  3. PROTON PUMP INHIBITORS [Concomitant]
  4. SOLU-MEDROL [Concomitant]
  5. PROGRAF [Concomitant]
     Dosage: 8MG IN MORNING AND 07 MG IN EVENING
     Dates: start: 20120915
  6. PROGRAF [Concomitant]
     Dosage: 2 MG, BID
  7. CELLCEPT [Concomitant]
     Dosage: 500 MG, BID
  8. ENCORTON [Concomitant]
     Dosage: 12.5 MG, QD
  9. CERTICAN [Concomitant]
     Dosage: 0.75 MG, BID
  10. CERTICAN [Concomitant]
     Dosage: 1.5 MG, BID
  11. RANIGAST [Concomitant]
     Dosage: 150 MG 1 TABLET ONCE DAILY BEFORE GOING TO BED
  12. FUROSEMIDE [Concomitant]
     Dosage: 1 DF, QD
  13. DIUVER [Concomitant]
     Dosage: 10 MG, QD
  14. HELICID [Concomitant]
     Dosage: 20 MG, QD
  15. LACTAMAG B6 [Concomitant]
     Dosage: 1 DF, QD
  16. DILZEM [Concomitant]
     Dosage: 180 MG, QD

REACTIONS (3)
  - Complications of transplanted kidney [Unknown]
  - Urinary tract infection [Recovering/Resolving]
  - Diarrhoea [Unknown]
